FAERS Safety Report 17809743 (Version 1)
Quarter: 2020Q2

REPORT INFORMATION
  Report Type: Spontaneous
  Country: PK (occurrence: PK)
  Receive Date: 20200520
  Receipt Date: 20200520
  Transmission Date: 20200714
  Serious: Yes (Life-Threatening, Hospitalization, Other)
  Sender: FDA-Public Use
  Company Number: NVSC2020PK128081

PATIENT
  Age: 29 Year
  Sex: Female
  Weight: 36 kg

DRUGS (12)
  1. DELAMANID [Suspect]
     Active Substance: DELAMANID
     Indication: TUBERCULOSIS
     Dosage: 100 MG, BID
     Route: 048
     Dates: start: 20200221, end: 20200326
  2. DELAMANID [Suspect]
     Active Substance: DELAMANID
     Dosage: 100 MG, BID
     Route: 048
     Dates: start: 20200420
  3. IMIPENEM [Suspect]
     Active Substance: IMIPENEM
     Indication: TUBERCULOSIS
     Dosage: 500 MG, TID
     Route: 042
     Dates: start: 20200405, end: 20200413
  4. DELAMANID [Suspect]
     Active Substance: DELAMANID
     Dosage: AT LOW DOSE
     Route: 048
     Dates: start: 20200414
  5. VITAMIN B-6 [Suspect]
     Active Substance: PYRIDOXINE
     Indication: PROPHYLAXIS
     Dosage: 50 MG, QD
     Route: 048
     Dates: start: 20200221, end: 20200326
  6. MOXIFLOXACIN. [Suspect]
     Active Substance: MOXIFLOXACIN
     Indication: TUBERCULOSIS
     Dosage: 400 MG, QD
     Route: 048
     Dates: start: 20200221, end: 20200326
  7. PYRAZINAMIDE. [Suspect]
     Active Substance: PYRAZINAMIDE
     Indication: TUBERCULOSIS
     Dosage: 800 MG, QD
     Route: 048
     Dates: start: 20200221, end: 20200326
  8. MEFENAMIC ACID. [Suspect]
     Active Substance: MEFENAMIC ACID
     Indication: MENORRHAGIA
  9. CLOFAZIMINE [Suspect]
     Active Substance: CLOFAZIMINE
     Indication: TUBERCULOSIS
     Dosage: 100 MG, QD
     Route: 048
     Dates: start: 20200221, end: 20200326
  10. MOXIFLOXACIN. [Suspect]
     Active Substance: MOXIFLOXACIN
     Dosage: UNK
     Route: 065
     Dates: start: 20200414
  11. MEFENAMIC ACID. [Suspect]
     Active Substance: MEFENAMIC ACID
     Indication: PELVIC PAIN
     Dosage: 500 MG, TID
     Route: 065
     Dates: start: 20200303, end: 20200310
  12. CLOFAZIMINE [Suspect]
     Active Substance: CLOFAZIMINE
     Dosage: 100 MG, QD
     Route: 048
     Dates: start: 20200420

REACTIONS (25)
  - Confusional state [Unknown]
  - Anuria [Unknown]
  - Seizure [Recovered/Resolved]
  - Skin exfoliation [Unknown]
  - Coma scale abnormal [Unknown]
  - Hypotension [Unknown]
  - Rash maculo-papular [Recovering/Resolving]
  - Otitis media [Recovered/Resolved]
  - Foaming at mouth [Unknown]
  - Pyrexia [Unknown]
  - Erythema [Unknown]
  - Hyponatraemia [Unknown]
  - Rash [Recovering/Resolving]
  - Seizure [Unknown]
  - Drug reaction with eosinophilia and systemic symptoms [Recovering/Resolving]
  - Swelling face [Recovering/Resolving]
  - Lethargy [Unknown]
  - Abdominal pain [Not Recovered/Not Resolved]
  - Weight increased [Recovering/Resolving]
  - Hallucination [Unknown]
  - Respiratory rate increased [Unknown]
  - Periorbital oedema [Recovering/Resolving]
  - Chapped lips [Recovering/Resolving]
  - Urinary incontinence [Unknown]
  - Eye movement disorder [Unknown]

NARRATIVE: CASE EVENT DATE: 20200303
